FAERS Safety Report 6263822-0 (Version None)
Quarter: 2009Q3

REPORT INFORMATION
  Report Type: 
  Country: None (occurrence: None)
  Receive Date: 20090707
  Receipt Date: 20090707
  Transmission Date: 20100115
  Serious: Yes (Other)
  Sender: FDA-Public Use
  Company Number: None

PATIENT
  Age: 45 Year
  Sex: Female
  Weight: 76.6579 kg

DRUGS (5)
  1. LAMOTRIGINE [Suspect]
     Indication: EPILEPSY
     Dosage: 4 TABLETS AND 3 TABLETS AM AND PM PO
     Route: 048
     Dates: start: 20090101, end: 20090309
  2. LAMICTAL [Suspect]
     Dosage: 4 TABLETS AND 3 TABLETS AM AND PM
     Dates: start: 20090309, end: 20090707
  3. AMBIEN [Concomitant]
  4. LEXAPRO [Concomitant]
  5. ALLEGRA [Concomitant]

REACTIONS (2)
  - CONVULSION [None]
  - PRODUCT SUBSTITUTION ISSUE [None]
